FAERS Safety Report 7578370-5 (Version None)
Quarter: 2011Q2

REPORT INFORMATION
  Report Type: 
  Country: None (occurrence: None)
  Receive Date: 20110628
  Receipt Date: 20110622
  Transmission Date: 20111010
  Serious: Yes (Hospitalization)
  Sender: FDA-Public Use
  Company Number: CA-ABBOTT-11P-028-0734675-00

PATIENT
  Sex: Female
  Weight: 93.07 kg

DRUGS (8)
  1. FOLIC ACID [Concomitant]
     Indication: VITAMIN SUPPLEMENTATION
     Route: 048
     Dates: start: 20080101
  2. HUMIRA [Suspect]
     Indication: CROHN'S DISEASE
     Route: 058
     Dates: start: 20090610, end: 20110609
  3. VITAMIN B-12 [Concomitant]
     Indication: VITAMIN SUPPLEMENTATION
     Route: 058
  4. MICARDIS HCT [Concomitant]
     Indication: HYPERTENSION
     Dosage: 80 MG / 12.5 MG ONCE DAILY
     Route: 048
     Dates: start: 20101001
  5. CIPROFLOXACIN [Suspect]
     Indication: KIDNEY INFECTION
     Route: 042
     Dates: start: 20110613, end: 20110622
  6. METHOTREXATE [Concomitant]
     Indication: CROHN'S DISEASE
     Route: 058
     Dates: start: 20080101
  7. RABEPRAZOLE SODIUM [Concomitant]
     Indication: GASTROOESOPHAGEAL REFLUX DISEASE
     Route: 048
  8. DEPO-PROVERA [Concomitant]
     Indication: OVARIAN DISORDER
     Route: 058

REACTIONS (6)
  - KIDNEY INFECTION [None]
  - BLOOD URINE PRESENT [None]
  - RASH PRURITIC [None]
  - INFLUENZA LIKE ILLNESS [None]
  - PYREXIA [None]
  - BACTERIAL TEST [None]
